FAERS Safety Report 17531029 (Version 2)
Quarter: 2020Q1

REPORT INFORMATION
  Report Type: Report from Study
  Country: US (occurrence: US)
  Receive Date: 20200311
  Receipt Date: 20200319
  Transmission Date: 20200409
  Serious: Yes (Death, Hospitalization)
  Sender: FDA-Public Use
  Company Number: US-ACTELION-A-US2020-200550

PATIENT
  Sex: Male
  Weight: 79.37 kg

DRUGS (5)
  1. VELETRI [Suspect]
     Active Substance: EPOPROSTENOL
     Dosage: 21 NG/KG, PER MIN
     Route: 042
  2. VELETRI [Suspect]
     Active Substance: EPOPROSTENOL
     Dosage: 16 NG/KG, PER MIN
     Route: 042
  3. ELIQUIS [Concomitant]
     Active Substance: APIXABAN
  4. ADEMPAS [Concomitant]
     Active Substance: RIOCIGUAT
  5. VELETRI [Suspect]
     Active Substance: EPOPROSTENOL
     Indication: PULMONARY ARTERIAL HYPERTENSION
     Dosage: 22 NG/KG, PER MIN
     Route: 042

REACTIONS (12)
  - Headache [Unknown]
  - Catheter site irritation [Unknown]
  - Vomiting [Unknown]
  - Decreased appetite [Unknown]
  - Glossodynia [Unknown]
  - Nausea [Unknown]
  - Dyspnoea [Unknown]
  - Cardiac arrest [Fatal]
  - Anxiety [Unknown]
  - Pain in jaw [Unknown]
  - Insomnia [Unknown]
  - Depressed mood [Unknown]
